FAERS Safety Report 24223653 (Version 1)
Quarter: 2024Q3

REPORT INFORMATION
  Report Type: Spontaneous
  Country: US (occurrence: None)
  Receive Date: 20240818
  Receipt Date: 20240818
  Transmission Date: 20241016
  Serious: Yes (Hospitalization)
  Sender: Public
  Company Number: None

PATIENT
  Sex: Male
  Weight: 18.6 kg

DRUGS (3)
  1. CARBOPLATIN [Suspect]
     Active Substance: CARBOPLATIN
     Dates: start: 20240202, end: 20240516
  2. CYCLOPHOSPHAMIDE [Concomitant]
     Active Substance: CYCLOPHOSPHAMIDE
  3. ETOPOSIDE [Concomitant]
     Active Substance: ETOPOSIDE

REACTIONS (6)
  - Febrile neutropenia [None]
  - Heart rate increased [None]
  - Febrile nonhaemolytic transfusion reaction [None]
  - Asthenia [None]
  - Pancytopenia [None]
  - Nausea [None]

NARRATIVE: CASE EVENT DATE: 20240730
